FAERS Safety Report 7308803-0 (Version None)
Quarter: 2011Q1

REPORT INFORMATION
  Report Type: 
  Country: None (occurrence: None)
  Receive Date: 20110223
  Receipt Date: 20110216
  Transmission Date: 20110831
  Serious: Yes (Death)
  Sender: FDA-Public Use
  Company Number: PHHY2011US12469

PATIENT
  Sex: Female

DRUGS (22)
  1. DILANTIN   EXTENDED RELEASE [Concomitant]
     Dosage: 100 MG, TID
  2. MAGNESIUM CHLORIDE [Concomitant]
     Dosage: 64 MG, TID
  3. ALBUTEROL SULFATE [Concomitant]
     Dosage: 1-2 PUFFS EVERY 6 HOURS
  4. SYMBICORT [Concomitant]
     Dosage: 80-4.5, UNK
  5. LANTUS [Concomitant]
     Dosage: 50 UNIT IN MORNING AND 20 UNITS AT NIGHT
  6. KEPPRA [Concomitant]
     Dosage: 500 MG, BID
  7. INSULIN [Concomitant]
  8. COUMADIN [Concomitant]
     Dosage: 2 MG, DAILY
  9. FERROUS SULFATE TAB [Concomitant]
     Dosage: 300 MG, BID
  10. TRIAMTERENE AND HYDROCHLOROTHIAZID [Concomitant]
     Dosage: 37.5-25, UNK
  11. BENZOYL TESSALON [Concomitant]
     Dosage: 100 MG, 2-3 TIMES DAILY
  12. ATENOLOL [Concomitant]
     Dosage: 50 MG, UNK
  13. SYMBICORT [Concomitant]
     Dosage: 160-4.5, UNK
  14. CLOTRIMAZOLE [Concomitant]
     Dosage: TID
  15. AFINITOR [Suspect]
     Dosage: 10 MG, QD
     Route: 048
     Dates: start: 20100101
  16. PHENERGAN EXPECTORANT W/ CODEINE [Concomitant]
     Indication: COUGH
     Dosage: 3 TIMES DAILY
  17. FELODIPINE [Concomitant]
     Dosage: 10 MG, DAILY
  18. GLYBURIDE [Concomitant]
     Dosage: 5 MG, UNK
  19. ASPIRIN [Concomitant]
     Dosage: 81 MG, UNK
  20. PREDNISONE [Concomitant]
     Dosage: 20 MG, BID
  21. FLORINEF [Concomitant]
     Dosage: 0.1 MG, Q 24 HRS
  22. ZOFRAN [Concomitant]
     Dosage: 8 MG, Q 8 HOURS

REACTIONS (9)
  - HEART RATE INCREASED [None]
  - BLOOD ALBUMIN DECREASED [None]
  - HAEMATOCRIT DECREASED [None]
  - BLOOD PRESSURE DECREASED [None]
  - HAEMOGLOBIN DECREASED [None]
  - OEDEMA PERIPHERAL [None]
  - HEADACHE [None]
  - DEATH [None]
  - WHITE BLOOD CELL COUNT INCREASED [None]
